FAERS Safety Report 25995881 (Version 2)
Quarter: 2025Q4

REPORT INFORMATION
  Report Type: Spontaneous
  Country: US (occurrence: US)
  Receive Date: 20251104
  Receipt Date: 20251125
  Transmission Date: 20260117
  Serious: Yes (Life-Threatening, Hospitalization)
  Sender: VERTEX
  Company Number: US-VERTEX PHARMACEUTICALS-2025-018190

PATIENT
  Age: 14 Year
  Sex: Male

DRUGS (2)
  1. ALYFTREK [Suspect]
     Active Substance: DEUTIVACAFTOR\TEZACAFTOR\VANZACAFTOR
     Indication: Cystic fibrosis
     Dosage: (10MG VANZACAFTOR/50MG TEZACAFTOR/125MG DEUTIVACAFTOR)
  2. ALYFTREK [Suspect]
     Active Substance: DEUTIVACAFTOR\TEZACAFTOR\VANZACAFTOR
     Dosage: 2 TABLETS (10MG VANZACAFTOR/50MG TEZACAFTOR/125MG DEUTIVACAFTOR), ONCE WEEKLY (QW)
     Dates: start: 2025

REACTIONS (2)
  - Acute myeloid leukaemia [Not Recovered/Not Resolved]
  - Central nervous system leukaemia [Not Recovered/Not Resolved]

NARRATIVE: CASE EVENT DATE: 20250101
